FAERS Safety Report 11518200 (Version 2)
Quarter: 2015Q3

REPORT INFORMATION
  Report Type: Spontaneous
  Country: BR (occurrence: BR)
  Receive Date: 20150917
  Receipt Date: 20150918
  Transmission Date: 20151125
  Serious: Yes (Disabling)
  Sender: FDA-Public Use
  Company Number: BR-PFIZER INC-2015307609

PATIENT
  Age: 90 Year
  Sex: Female

DRUGS (3)
  1. CENTRUM /07499601/ [Concomitant]
     Indication: FOOT OPERATION
     Dosage: UNK
     Route: 048
     Dates: start: 2010
  2. CENTRUM /07499601/ [Concomitant]
     Indication: SENILE DEMENTIA
     Dosage: UNK
     Route: 048
     Dates: start: 201505
  3. ATENOLOL. [Suspect]
     Active Substance: ATENOLOL
     Dosage: UNK
     Route: 048

REACTIONS (2)
  - Senile dementia [Not Recovered/Not Resolved]
  - Choking [Recovered/Resolved]

NARRATIVE: CASE EVENT DATE: 2010
